FAERS Safety Report 8759632 (Version 3)
Quarter: 2012Q4

REPORT INFORMATION
  Report Type: Report from Study
  Country: US (occurrence: US)
  Receive Date: 20120829
  Receipt Date: 20120922
  Transmission Date: 20130627
  Serious: Yes (Other)
  Sender: FDA-Public Use
  Company Number: US-ABBOTT-12P-163-0970921-00

PATIENT
  Sex: Female

DRUGS (10)
  1. HUMIRA 40 MG/0.8 ML PEN [Suspect]
     Indication: RHEUMATOID ARTHRITIS
     Dates: end: 201206
  2. HUMIRA 40 MG/0.8 ML PEN [Suspect]
     Dates: start: 201206
  3. CYMBALTA [Suspect]
     Indication: BURNING SENSATION
     Dosage: 30 mg for 1 month
     Dates: start: 201203
  4. CYMBALTA [Suspect]
     Dosage: 60 mg for 2 weeks
  5. CYMBALTA [Suspect]
  6. CYMBALTA [Suspect]
     Dosage: increased to 60 mg
  7. CRESTOR [Concomitant]
     Indication: BLOOD CHOLESTEROL INCREASED
     Route: 048
  8. FISH OIL [Concomitant]
     Indication: CARDIAC DISORDER
     Route: 048
  9. METHOTREXATE [Concomitant]
     Indication: RHEUMATOID ARTHRITIS
  10. FOLIC ACID [Concomitant]
     Indication: PRODUCT USED FOR UNKNOWN INDICATION
     Dosage: Daily, take with METHOTREXATE

REACTIONS (18)
  - Chest discomfort [Not Recovered/Not Resolved]
  - Cardiac stress test abnormal [Unknown]
  - Cardiac monitoring abnormal [Unknown]
  - Burning sensation [Not Recovered/Not Resolved]
  - Insomnia [Recovered/Resolved]
  - Feeling abnormal [Recovered/Resolved]
  - Drug effect incomplete [Recovered/Resolved]
  - Fatigue [Not Recovered/Not Resolved]
  - Blood iron decreased [Unknown]
  - White blood cell count decreased [Not Recovered/Not Resolved]
  - Vitamin D decreased [Not Recovered/Not Resolved]
  - Spinal disorder [Unknown]
  - Palpitations [Recovered/Resolved]
  - Dyspnoea [Recovered/Resolved]
  - Fatigue [Not Recovered/Not Resolved]
  - Decreased appetite [Not Recovered/Not Resolved]
  - Vitamin B12 decreased [Unknown]
  - White blood cell count abnormal [Unknown]
